FAERS Safety Report 6180182-4 (Version None)
Quarter: 2009Q2

REPORT INFORMATION
  Report Type: 
  Country: None (occurrence: None)
  Receive Date: 20090501
  Receipt Date: 20090417
  Transmission Date: 20091009
  Serious: Yes (Hospitalization)
  Sender: FDA-Public Use
  Company Number: B0571451A

PATIENT
  Age: 40 Year
  Sex: Female

DRUGS (7)
  1. ABACAVIR SULPHATE (FORMULATION UNKNOWN) (GENERIC) (ABACAVIR SULPHATE) [Suspect]
     Indication: HIV INFECTION
  2. EPIVIR [Suspect]
     Indication: HIV INFECTION
  3. RETROVIR [Suspect]
     Indication: HIV INFECTION
  4. LOPINAVIR (FORMULATION UNKNOWN) (LOPINAVIR) [Suspect]
     Indication: HIV INFECTION
  5. RITONAVIR [Suspect]
     Indication: HIV INFECTION
  6. (T-20) FORMUATION UNKNOWN(T-20) [Suspect]
     Indication: HIV INFECTION
  7. . [Concomitant]

REACTIONS (6)
  - ACUTE RESPIRATORY FAILURE [None]
  - DRUG HYPERSENSITIVITY [None]
  - FUNGAL INFECTION [None]
  - HYPOTENSION [None]
  - OESOPHAGEAL INFECTION [None]
  - TRANSAMINASES INCREASED [None]
